FAERS Safety Report 9297577 (Version 2)
Quarter: 2013Q2

REPORT INFORMATION
  Report Type: Spontaneous
  Country: US (occurrence: US)
  Receive Date: 20130520
  Receipt Date: 20130522
  Transmission Date: 20140414
  Serious: Yes (Hospitalization, Other)
  Sender: FDA-Public Use
  Company Number: US-PFIZER INC-2013150223

PATIENT
  Age: 66 Year
  Sex: Male
  Weight: 96.15 kg

DRUGS (6)
  1. ANTIVERT [Suspect]
     Indication: VERTIGO POSITIONAL
     Dosage: 25 MG, 2X/DAY
     Dates: start: 20130222, end: 20130223
  2. ANTIVERT [Suspect]
     Indication: DIZZINESS
     Dosage: UNK
  3. ANTIVERT [Suspect]
     Indication: NAUSEA
  4. ANTIVERT [Suspect]
     Indication: VOMITING
  5. ASPIRIN [Suspect]
     Dosage: 81 MG, 1X/DAY
  6. MEVACOR [Suspect]
     Indication: BLOOD CHOLESTEROL INCREASED
     Dosage: 20 MG, 1X/DAY
     Dates: end: 201302

REACTIONS (3)
  - Cerebrovascular accident [Recovered/Resolved]
  - Diplopia [Recovered/Resolved]
  - Somnolence [Unknown]
